FAERS Safety Report 5761257-8 (Version None)
Quarter: 2008Q2

REPORT INFORMATION
  Report Type: 
  Country: None (occurrence: None)
  Receive Date: 20080606
  Receipt Date: 20080528
  Transmission Date: 20081010
  Serious: Yes (Other)
  Sender: FDA-Public Use
  Company Number: FR-ASTRAZENECA-2008CG00485

PATIENT
  Age: 842 Month
  Sex: Male
  Weight: 92 kg

DRUGS (1)
  1. MOPRAL [Suspect]
     Indication: HIATUS HERNIA
     Dosage: 20 MG PER DAY THREE DAYS OUT OF FOUR
     Route: 048
     Dates: start: 19960101, end: 20080226

REACTIONS (1)
  - POLYNEUROPATHY [None]
